FAERS Safety Report 15383206 (Version 1)
Quarter: 2018Q3

REPORT INFORMATION
  Report Type: Spontaneous
  Country: CH (occurrence: CH)
  Receive Date: 20180913
  Receipt Date: 20180913
  Transmission Date: 20181010
  Serious: Yes (Death, Hospitalization, Other)
  Sender: FDA-Public Use
  Company Number: CH-SHIRE-CH201834041

PATIENT

DRUGS (1)
  1. CUVITRU [Suspect]
     Active Substance: HUMAN IMMUNOGLOBULIN G
     Indication: IMMUNODEFICIENCY COMMON VARIABLE
     Dosage: 4 G, 1X/WEEK
     Route: 058
     Dates: start: 20180202, end: 20180608

REACTIONS (5)
  - Hospitalisation [Unknown]
  - Chronic obstructive pulmonary disease [Fatal]
  - Fall [Unknown]
  - Femoral neck fracture [Unknown]
  - General physical health deterioration [Unknown]
